FAERS Safety Report 4685358-0 (Version None)
Quarter: 2005Q2

REPORT INFORMATION
  Report Type: 
  Country: None (occurrence: None)
  Receive Date: 20050608
  Receipt Date: 20040220
  Transmission Date: 20051028
  Serious: Yes (Hospitalization, Other)
  Sender: FDA-Public Use
  Company Number: US-GLAXOSMITHKLINE-A0499986A

PATIENT
  Age: 49 Year
  Sex: Female
  Weight: 103.6 kg

DRUGS (10)
  1. PAXIL [Suspect]
     Indication: DEPRESSION
     Dosage: 20MG PER DAY
     Route: 048
     Dates: start: 19980308, end: 20040606
  2. FLONASE [Concomitant]
  3. GLUCOPHAGE [Concomitant]
  4. LIPITOR [Concomitant]
  5. ALBUTEROL [Concomitant]
  6. ADVAIR DISKUS 100/50 [Concomitant]
  7. CLARITIN-D [Concomitant]
  8. ALLEGRA [Concomitant]
  9. WELLBUTRIN SR [Concomitant]
     Dates: start: 20030401
  10. ACTOS [Concomitant]

REACTIONS (17)
  - AGGRESSION [None]
  - AGITATION [None]
  - ANXIETY [None]
  - CONFUSIONAL STATE [None]
  - DEPRESSION [None]
  - DISABILITY [None]
  - DISTURBANCE IN ATTENTION [None]
  - DRUG WITHDRAWAL SYNDROME [None]
  - DYSPHORIA [None]
  - HYPERHIDROSIS [None]
  - INSOMNIA [None]
  - LETHARGY [None]
  - MEMORY IMPAIRMENT [None]
  - NERVOUSNESS [None]
  - STRESS [None]
  - SUICIDAL IDEATION [None]
  - TREMOR [None]
